FAERS Safety Report 10085202 (Version 2)
Quarter: 2014Q2

REPORT INFORMATION
  Report Type: Spontaneous
  Country: US (occurrence: US)
  Receive Date: 20140417
  Receipt Date: 20140417
  Transmission Date: 20141212
  Serious: Yes (Other)
  Sender: FDA-Public Use
  Company Number: US-GE HEALTHCARE MEDICAL DIAGNOSTICS-VISP-PR-1402S-0079

PATIENT
  Age: 51 Year
  Sex: Male
  Weight: 62.65 kg

DRUGS (2)
  1. VISIPAQUE [Suspect]
     Indication: NEUROENDOCRINE CARCINOMA
     Route: 042
     Dates: start: 20140211, end: 20140211
  2. VISIPAQUE [Suspect]
     Indication: DIAGNOSTIC PROCEDURE

REACTIONS (1)
  - Dyspnoea [Recovered/Resolved]
